FAERS Safety Report 21839046 (Version 1)
Quarter: 2023Q1

REPORT INFORMATION
  Report Type: Spontaneous
  Country: US (occurrence: None)
  Receive Date: 20230108
  Receipt Date: 20230108
  Transmission Date: 20230417
  Serious: Yes (Other)
  Sender: FDA-Public Use
  Company Number: None

PATIENT
  Age: 20 Year
  Sex: Female
  Weight: 77.11 kg

DRUGS (5)
  1. SUNOSI [Suspect]
     Active Substance: SOLRIAMFETOL
     Indication: Hypersomnia
     Dosage: 1 TABLET IN THE MORNING
     Route: 048
     Dates: start: 2019, end: 20221227
  2. GABAPENTIN [Concomitant]
     Active Substance: GABAPENTIN
  3. OMEPRAZOLE [Concomitant]
     Active Substance: OMEPRAZOLE
  4. TOPERIMATE [Concomitant]
  5. FOLIC ACID [Concomitant]
     Active Substance: FOLIC ACID

REACTIONS (10)
  - Hypersomnia [None]
  - Impaired driving ability [None]
  - Migraine [None]
  - Anxiety [None]
  - Abdominal discomfort [None]
  - Nausea [None]
  - Loss of consciousness [None]
  - Road traffic accident [None]
  - Loss of personal independence in daily activities [None]
  - Insurance issue [None]

NARRATIVE: CASE EVENT DATE: 20221223
